FAERS Safety Report 12797710 (Version 1)
Quarter: 2016Q3

REPORT INFORMATION
  Report Type: Report from Study
  Country: US (occurrence: US)
  Receive Date: 20160930
  Receipt Date: 20160930
  Transmission Date: 20161109
  Serious: Yes (Other)
  Sender: FDA-Public Use
  Company Number: US-ROCHE-1836544

PATIENT
  Age: 74 Year
  Sex: Female

DRUGS (1)
  1. XOLAIR [Suspect]
     Active Substance: OMALIZUMAB
     Indication: ASTHMA
     Dosage: 150 (UNIT NOT REPORTED)
     Route: 065
     Dates: start: 201501, end: 201512

REACTIONS (2)
  - Asthma [Unknown]
  - Therapy non-responder [Unknown]
